FAERS Safety Report 4501265-8 (Version None)
Quarter: 2004Q4

REPORT INFORMATION
  Report Type: 
  Country: None (occurrence: None)
  Receive Date: 20041110
  Receipt Date: 20041028
  Transmission Date: 20050328
  Serious: Yes (Hospitalization)
  Sender: FDA-Public Use
  Company Number: 2004077679

PATIENT
  Sex: Female

DRUGS (3)
  1. NICORETTE [Suspect]
     Indication: SMOKING CESSATION THERAPY
     Dosage: 15MG THEN 10MG, TRANSDERMAL
     Route: 062
     Dates: start: 20040801
  2. AMINOPHYLLIN [Concomitant]
  3. ANTI-ASTHMATICS (ANTI-ASTHMATICS) [Concomitant]

REACTIONS (2)
  - LOWER RESPIRATORY TRACT INFECTION [None]
  - PALPITATIONS [None]
